FAERS Safety Report 15061011 (Version 1)
Quarter: 2018Q2

REPORT INFORMATION
  Report Type: Spontaneous
  Country: US (occurrence: US)
  Receive Date: 20180625
  Receipt Date: 20180625
  Transmission Date: 20180711
  Serious: Yes (Other)
  Sender: FDA-Public Use
  Company Number: US-ROCHE-1930586

PATIENT
  Sex: Female

DRUGS (1)
  1. XELODA [Suspect]
     Active Substance: CAPECITABINE
     Indication: PRODUCT USED FOR UNKNOWN INDICATION
     Dosage: FREQUENCY: QD FOR 14 DAYS OF 21 DAY CYCLE?STRENGTH: 150 MG AND 500 MG.
     Route: 048
     Dates: start: 20170207

REACTIONS (1)
  - Skin exfoliation [Unknown]
